FAERS Safety Report 6603563-0 (Version None)
Quarter: 2010Q1

REPORT INFORMATION
  Report Type: 
  Country: None (occurrence: None)
  Receive Date: 20100226
  Receipt Date: 20091012
  Transmission Date: 20100710
  Serious: No
  Sender: FDA-Public Use
  Company Number: A0811387A

PATIENT
  Age: 66 Year
  Sex: Female

DRUGS (4)
  1. VALTREX [Suspect]
     Indication: RASH
     Dosage: 2G TWICE PER DAY
     Route: 048
     Dates: start: 20091009
  2. SYNTHROID [Concomitant]
  3. ATENOLOL [Concomitant]
  4. ENALAPRIL MALEATE [Concomitant]

REACTIONS (3)
  - DIARRHOEA [None]
  - DIZZINESS [None]
  - NAUSEA [None]
